FAERS Safety Report 14958616 (Version 2)
Quarter: 2018Q2

REPORT INFORMATION
  Report Type: Spontaneous
  Country: US (occurrence: US)
  Receive Date: 20180531
  Receipt Date: 20180608
  Transmission Date: 20180711
  Serious: Yes (Hospitalization)
  Sender: FDA-Public Use
  Company Number: US-CELGENEUS-USA-20180509388

PATIENT
  Age: 67 Year
  Sex: Male

DRUGS (4)
  1. THALOMID [Suspect]
     Active Substance: THALIDOMIDE
     Indication: GASTROINTESTINAL HAEMORRHAGE
     Dosage: 100 MILLIGRAM
     Route: 048
     Dates: start: 20170413
  2. THALOMID [Suspect]
     Active Substance: THALIDOMIDE
     Indication: HYPERTENSIVE HEART DISEASE
     Dosage: 100 MILLIGRAM
     Route: 048
     Dates: start: 201805
  3. OCTREOTIDE. [Concomitant]
     Active Substance: OCTREOTIDE
     Indication: ARTERIOVENOUS MALFORMATION
     Dosage: 20 MILLIGRAM
     Route: 030
     Dates: start: 20160401
  4. THALOMID [Suspect]
     Active Substance: THALIDOMIDE
     Indication: CARDIAC ASSISTANCE DEVICE USER
     Dosage: 100 MILLIGRAM
     Route: 048
     Dates: start: 20180119, end: 20180425

REACTIONS (1)
  - Red blood cell count decreased [Recovering/Resolving]

NARRATIVE: CASE EVENT DATE: 20180425
